FAERS Safety Report 14159137 (Version 2)
Quarter: 2017Q4

REPORT INFORMATION
  Report Type: Report from Study
  Country: DK (occurrence: DK)
  Receive Date: 20171103
  Receipt Date: 20171110
  Transmission Date: 20180321
  Serious: Yes (Death)
  Sender: FDA-Public Use
  Company Number: DK-SEATTLE GENETICS-2017SGN02749

PATIENT
  Age: 57 Year
  Sex: Male
  Weight: 68 kg

DRUGS (8)
  1. CISPLATIN. [Suspect]
     Active Substance: CISPLATIN
     Indication: HODGKIN^S DISEASE
     Dosage: 188 MG, UNK
     Route: 042
     Dates: start: 20170530, end: 20170530
  2. BRENTUXIMAB VEDOTIN [Suspect]
     Active Substance: BRENTUXIMAB VEDOTIN
     Indication: HODGKIN^S DISEASE
     Dosage: 128.9 MG, UNK
     Route: 042
     Dates: start: 20170530, end: 20170530
  3. CYTARABINE. [Suspect]
     Active Substance: CYTARABINE
     Indication: HODGKIN^S DISEASE
     Dosage: 1520 MG, UNK
     Route: 042
     Dates: start: 20170627, end: 20170630
  4. CARMUSTINE [Suspect]
     Active Substance: CARMUSTINE
     Indication: HODGKIN^S DISEASE
     Dosage: 556 MG, UNK
     Route: 042
     Dates: start: 20170626, end: 20170626
  5. ETOPOSIDE. [Suspect]
     Active Substance: ETOPOSIDE
     Indication: HODGKIN^S DISEASE
     Dosage: 1520 MG, UNK
     Route: 042
     Dates: start: 20170627, end: 20170630
  6. BRENTUXIMAB VEDOTIN [Suspect]
     Active Substance: BRENTUXIMAB VEDOTIN
     Indication: HODGKIN^S DISEASE
  7. DEXAMETHASONE. [Suspect]
     Active Substance: DEXAMETHASONE
     Indication: HODGKIN^S DISEASE
     Dosage: 48 MG, UNK
     Route: 048
     Dates: start: 20170626, end: 20170701
  8. MELPHALAN. [Suspect]
     Active Substance: MELPHALAN
     Indication: HODGKIN^S DISEASE
     Dosage: 265 MG, UNK
     Route: 042
     Dates: start: 20170630, end: 20170630

REACTIONS (1)
  - Encephalitis [Fatal]

NARRATIVE: CASE EVENT DATE: 20170919
